FAERS Safety Report 6716247-5 (Version None)
Quarter: 2010Q2

REPORT INFORMATION
  Report Type: 
  Country: None (occurrence: None)
  Receive Date: 20100507
  Receipt Date: 20100428
  Transmission Date: 20101027
  Serious: Yes (Hospitalization)
  Sender: FDA-Public Use
  Company Number: ZA-BRISTOL-MYERS SQUIBB COMPANY-15064595

PATIENT
  Age: 60 Year
  Sex: Male

DRUGS (12)
  1. BLINDED: SAXAGLIPTIN [Suspect]
     Indication: TYPE 2 DIABETES MELLITUS
     Route: 048
     Dates: start: 20090806
  2. BLINDED: PLACEBO [Suspect]
     Indication: TYPE 2 DIABETES MELLITUS
     Route: 048
     Dates: start: 20090806
  3. INSULIN [Suspect]
     Indication: TYPE 2 DIABETES MELLITUS
     Dates: start: 20090806
  4. SENOKOT [Concomitant]
     Dates: start: 20080601
  5. DISPRIN [Concomitant]
     Dates: start: 20080101
  6. TREPILINE [Concomitant]
     Dates: start: 20060101
  7. NORVASC [Concomitant]
     Dates: start: 20080601
  8. ENALAPRIL MALEATE [Concomitant]
     Dates: start: 19950101
  9. FUROSEMIDE [Concomitant]
     Dates: start: 20081001
  10. HYDRALAZINE HCL [Concomitant]
     Dates: start: 20070601
  11. PHENERGAN [Concomitant]
     Dates: start: 20090101
  12. SIMVASTIN [Concomitant]
     Dates: start: 20081001

REACTIONS (4)
  - CHOLANGITIS ACUTE [None]
  - JAUNDICE [None]
  - RENAL FAILURE ACUTE [None]
  - SEPTIC SHOCK [None]
